FAERS Safety Report 11003985 (Version 1)
Quarter: 2015Q2

REPORT INFORMATION
  Report Type: Spontaneous
  Country: None (occurrence: None)
  Receive Date: 20150408
  Receipt Date: 20150408
  Transmission Date: 20150821
  Serious: Yes (Hospitalization)
  Sender: FDA-Public Use
  Company Number: None

PATIENT
  Age: 10 Year
  Sex: Female
  Weight: 24.95 kg

DRUGS (1)
  1. PEG 3350 [Suspect]
     Active Substance: POLYETHYLENE GLYCOL 3350
     Indication: CONSTIPATION
     Route: 048
     Dates: start: 20150402, end: 20150404

REACTIONS (4)
  - Hypersensitivity [None]
  - Erythema multiforme [None]
  - Joint swelling [None]
  - Rash [None]

NARRATIVE: CASE EVENT DATE: 20150405
